FAERS Safety Report 18932103 (Version 1)
Quarter: 2021Q1

REPORT INFORMATION
  Report Type: Report from Study
  Country: US (occurrence: US)
  Receive Date: 20210224
  Receipt Date: 20210224
  Transmission Date: 20210420
  Serious: No
  Sender: FDA-Public Use
  Company Number: US-BIOVITRUM-2021US0205

PATIENT
  Sex: Female

DRUGS (20)
  1. NEXIUM [Concomitant]
     Active Substance: ESOMEPRAZOLE MAGNESIUM
  2. GABAPENTIN. [Concomitant]
     Active Substance: GABAPENTIN
  3. BIOTIN [Concomitant]
     Active Substance: BIOTIN
  4. ATORVASTATIN [Concomitant]
     Active Substance: ATORVASTATIN
  5. CRANBERRY SUPPLMENT [Concomitant]
  6. CALCIUM [Concomitant]
     Active Substance: CALCIUM
  7. ECHINACEA [Concomitant]
     Active Substance: ECHINACEA, UNSPECIFIED
  8. LORAZEPAM. [Concomitant]
     Active Substance: LORAZEPAM
  9. VALTREX [Concomitant]
     Active Substance: VALACYCLOVIR HYDROCHLORIDE
  10. PROBIOTIC [Concomitant]
     Active Substance: PROBIOTICS NOS
  11. MULTIVITAMINS [Concomitant]
     Active Substance: VITAMINS
  12. VITAMIN C AND D [Concomitant]
  13. ALEVE [Concomitant]
     Active Substance: NAPROXEN SODIUM
  14. TRAMADOL. [Concomitant]
     Active Substance: TRAMADOL
  15. KINERET [Suspect]
     Active Substance: ANAKINRA
     Indication: RHEUMATOID ARTHRITIS
     Dosage: 100MG/0.67ML
     Route: 058
     Dates: start: 20201230
  16. LISINOPRIL. [Concomitant]
     Active Substance: LISINOPRIL
  17. HYDROCHLOROQUINE [Concomitant]
     Active Substance: HYDROXYCHLOROQUINE SULFATE
  18. PREDNISONE. [Concomitant]
     Active Substance: PREDNISONE
  19. VITAMIN C AND D [Concomitant]
  20. TYLENOL [Concomitant]
     Active Substance: ACETAMINOPHEN

REACTIONS (7)
  - Adverse drug reaction [Unknown]
  - Injection site pain [Unknown]
  - Hair texture abnormal [Unknown]
  - Injection site erythema [Unknown]
  - Product use issue [Unknown]
  - Drug ineffective [Unknown]
  - Trichorrhexis [Unknown]
